FAERS Safety Report 5629432-0 (Version None)
Quarter: 2008Q1

REPORT INFORMATION
  Report Type: 
  Country: None (occurrence: None)
  Receive Date: 20080218
  Receipt Date: 20080208
  Transmission Date: 20080703
  Serious: Yes (Hospitalization)
  Sender: FDA-Public Use
  Company Number: US-NOVOPROD-271064

PATIENT

DRUGS (3)
  1. NOVOLOG MIX 70/30 [Suspect]
     Indication: INSULIN-REQUIRING TYPE 2 DIABETES MELLITUS
     Dosage: 35 IU, BID
     Route: 058
     Dates: end: 20080113
  2. NOVOLOG MIX 70/30 [Suspect]
     Dosage: 40 UNK, UNK
     Route: 058
     Dates: start: 20080114
  3. GLYBURIDE [Concomitant]
     Indication: INSULIN-REQUIRING TYPE 2 DIABETES MELLITUS
     Dosage: UNKNOWN
     Route: 048
     Dates: start: 20070801

REACTIONS (2)
  - DEVICE FAILURE [None]
  - INJECTION SITE INFECTION [None]
